FAERS Safety Report 17461238 (Version 3)
Quarter: 2020Q4

REPORT INFORMATION
  Report Type: Report from Study
  Country: JP (occurrence: JP)
  Receive Date: 20200226
  Receipt Date: 20201013
  Transmission Date: 20210113
  Serious: Yes (Death, Hospitalization, Other)
  Sender: FDA-Public Use
  Company Number: JP-ROCHE-2516855

PATIENT
  Age: 66 Year
  Sex: Male
  Weight: 62 kg

DRUGS (1)
  1. ATEZOLIZUMAB. [Suspect]
     Active Substance: ATEZOLIZUMAB
     Indication: NON-SMALL CELL LUNG CANCER
     Dosage: DATE OF MOST RECENT DOSE PRIOR TO EVENT ONSET: 12/DEC/2019
     Route: 041
     Dates: start: 20191212

REACTIONS (6)
  - Dyspnoea [Unknown]
  - Pneumonitis [Recovering/Resolving]
  - Pneumonia [Unknown]
  - Hyperkalaemia [Unknown]
  - Interstitial lung disease [Fatal]
  - Influenza [Unknown]

NARRATIVE: CASE EVENT DATE: 20191227
